FAERS Safety Report 23407164 (Version 3)
Quarter: 2024Q1

REPORT INFORMATION
  Report Type: Spontaneous
  Country: US (occurrence: US)
  Receive Date: 20240116
  Receipt Date: 20240328
  Transmission Date: 20240410
  Serious: No
  Sender: FDA-Public Use
  Company Number: US-BAUSCHBL-2024BNL000383

PATIENT
  Age: 84 Year
  Sex: Female

DRUGS (2)
  1. XIIDRA [Suspect]
     Active Substance: LIFITEGRAST
     Indication: Dry eye
     Dosage: BOTH EYES
     Route: 047
  2. SYSTANE (HYPROMELLOSE 2910 (4000 MPA.S)) [Suspect]
     Active Substance: HYPROMELLOSE 2910 (4000 MPA.S)
     Indication: Product used for unknown indication
     Route: 065

REACTIONS (7)
  - Discomfort [Unknown]
  - Eye irritation [Recovered/Resolved]
  - Patient dissatisfaction with treatment [Unknown]
  - Product dose omission in error [Unknown]
  - Product use complaint [Unknown]
  - Exposure via skin contact [Unknown]
  - Accidental exposure to product [Unknown]
